FAERS Safety Report 9046931 (Version 1)
Quarter: 2013Q1

REPORT INFORMATION
  Report Type: Spontaneous
  Country: US (occurrence: None)
  Receive Date: 20130129
  Receipt Date: 20130129
  Transmission Date: 20140127
  Serious: Yes (Life-Threatening, Other)
  Sender: FDA-Public Use
  Company Number: None

PATIENT
  Sex: Female
  Weight: 84.37 kg

DRUGS (1)
  1. COLESEVELAM HYDROCHLORIDE [Suspect]
     Indication: BLOOD CHOLESTEROL INCREASED
     Dosage: 3 TABLETS BY MOUTH, 2X A DAY
     Route: 048
     Dates: start: 20120101, end: 20130119

REACTIONS (13)
  - Constipation [None]
  - Dry mouth [None]
  - Dry throat [None]
  - Rhinorrhoea [None]
  - Myalgia [None]
  - Pain [None]
  - Asthenia [None]
  - Dyspepsia [None]
  - Pain in extremity [None]
  - Somnolence [None]
  - Asthenia [None]
  - Blood glucose increased [None]
  - Drug interaction [None]
